FAERS Safety Report 18741238 (Version 2)
Quarter: 2021Q1

REPORT INFORMATION
  Report Type: Spontaneous
  Country: US (occurrence: US)
  Receive Date: 20210114
  Receipt Date: 20210303
  Transmission Date: 20210419
  Serious: No
  Sender: FDA-Public Use
  Company Number: US-ELI_LILLY_AND_COMPANY-US202101002160

PATIENT
  Age: 79 Year
  Sex: Female
  Weight: 53.52 kg

DRUGS (4)
  1. BAMLANIVIMAB 700MG [Suspect]
     Active Substance: BAMLANIVIMAB
     Indication: COVID-19
     Dosage: 700 MG, SINGLE
     Route: 042
     Dates: start: 20201220, end: 20201220
  2. UREA. [Interacting]
     Active Substance: UREA
     Indication: PRODUCT USED FOR UNKNOWN INDICATION
     Dosage: 1 DOSAGE FORM, UNKNOWN
     Route: 065
  3. LOSARTAN. [Concomitant]
     Active Substance: LOSARTAN
     Indication: PRODUCT USED FOR UNKNOWN INDICATION
     Dosage: 25 MG, BID
     Route: 048
     Dates: start: 20200924
  4. OSIMERTINIB. [Concomitant]
     Active Substance: OSIMERTINIB
     Indication: MENINGIOMA MALIGNANT
     Dosage: 40 MG, DAILY
     Route: 048
     Dates: start: 20200924

REACTIONS (5)
  - Drug interaction [Recovering/Resolving]
  - Infusion related reaction [Recovering/Resolving]
  - Rash [Recovered/Resolved]
  - Dermatitis [Recovered/Resolved]
  - Viral rash [Recovering/Resolving]
